FAERS Safety Report 14594021 (Version 1)
Quarter: 2018Q1

REPORT INFORMATION
  Report Type: Spontaneous
  Country: US (occurrence: US)
  Receive Date: 20180302
  Receipt Date: 20180302
  Transmission Date: 20180509
  Serious: No
  Sender: FDA-Public Use
  Company Number: US-AMGEN-USASL2017086189

PATIENT
  Sex: Female

DRUGS (1)
  1. SENSIPAR [Suspect]
     Active Substance: CINACALCET HYDROCHLORIDE
     Indication: BLOOD CALCIUM INCREASED
     Dosage: 30 MG, QD
     Route: 048
     Dates: start: 201704

REACTIONS (7)
  - Heart rate decreased [Unknown]
  - Off label use [Unknown]
  - Urinary incontinence [Unknown]
  - Irritability [Unknown]
  - Renal disorder [Unknown]
  - Chest pain [Unknown]
  - Urinary tract infection [Recovering/Resolving]
